FAERS Safety Report 17561364 (Version 3)
Quarter: 2020Q2

REPORT INFORMATION
  Report Type: Spontaneous
  Country: CA (occurrence: CA)
  Receive Date: 20200319
  Receipt Date: 20200417
  Transmission Date: 20200713
  Serious: Yes (Hospitalization)
  Sender: FDA-Public Use
  Company Number: CA-VERTEX PHARMACEUTICALS-2020-003452

PATIENT
  Sex: Male
  Weight: 90 kg

DRUGS (13)
  1. ZITHROMAX [Concomitant]
     Active Substance: AZITHROMYCIN DIHYDRATE
  2. VITAMIN K [MENADIONE] [Concomitant]
     Active Substance: MENADIONE
  3. VENTOLIN [Concomitant]
     Active Substance: ALBUTEROL SULFATE
  4. CAYSTON [Concomitant]
     Active Substance: AZTREONAM
  5. NORMAL SALINE [Concomitant]
     Active Substance: SODIUM CHLORIDE
  6. INSULIN [Concomitant]
     Active Substance: INSULIN NOS
  7. SYMDEKO [Suspect]
     Active Substance: IVACAFTOR\TEZACAFTOR
     Indication: CYSTIC FIBROSIS
     Dosage: 1 TAB (100MG TEZACAFTOR/150MG IVACAFTOR) AM; 1 TAB (150 MG IVACAFTOR) PM
     Route: 048
     Dates: start: 201906
  8. AZTREONAM. [Concomitant]
     Active Substance: AZTREONAM
  9. TOBRAMYCIN. [Concomitant]
     Active Substance: TOBRAMYCIN
  10. RAMIPRIL. [Concomitant]
     Active Substance: RAMIPRIL
  11. VITAMIN E [Concomitant]
     Active Substance: .ALPHA.-TOCOPHEROL
  12. VITAMIN D [ERGOCALCIFEROL] [Concomitant]
     Active Substance: ERGOCALCIFEROL
  13. PULMOZYME [Concomitant]
     Active Substance: DORNASE ALFA

REACTIONS (3)
  - Dyspnoea exertional [Not Recovered/Not Resolved]
  - Pneumonia [Unknown]
  - Drug ineffective [Unknown]

NARRATIVE: CASE EVENT DATE: 2019
